FAERS Safety Report 7956480-8 (Version None)
Quarter: 2011Q4

REPORT INFORMATION
  Report Type: 
  Country: None (occurrence: None)
  Receive Date: 20111205
  Receipt Date: 20111125
  Transmission Date: 20120403
  Serious: Yes (Hospitalization)
  Sender: FDA-Public Use
  Company Number: US-BAYER-201033144NA

PATIENT
  Age: 12 Year
  Sex: Female
  Weight: 47.166 kg

DRUGS (6)
  1. THYROID TAB [Concomitant]
     Indication: HYPOTHYROIDISM
     Dosage: 30 MG, BID
     Route: 048
  2. YAZ [Suspect]
     Indication: MENSTRUATION IRREGULAR
     Dosage: UNK
     Route: 048
     Dates: start: 20080601, end: 20081001
  3. XOPENEX [Concomitant]
     Dosage: 5 MG, QD
     Dates: start: 20080704, end: 20080710
  4. ALBUTEROL [Concomitant]
     Indication: ASTHMA
  5. XYZAL [Concomitant]
     Indication: MULTIPLE ALLERGIES
  6. CEPHALEXIN [Concomitant]
     Indication: DYSPNOEA
     Dosage: UNK
     Dates: start: 20080626, end: 20100710

REACTIONS (10)
  - FLATULENCE [None]
  - CHOLECYSTITIS CHRONIC [None]
  - CONSTIPATION [None]
  - DYSPEPSIA [None]
  - DIARRHOEA [None]
  - ANXIETY [None]
  - DEPRESSION [None]
  - CHOLECYSTECTOMY [None]
  - SCAR [None]
  - ABDOMINAL DISTENSION [None]
